FAERS Safety Report 5227161-9 (Version None)
Quarter: 2007Q1

REPORT INFORMATION
  Report Type: 
  Country: None (occurrence: None)
  Receive Date: 20070202
  Receipt Date: 20070124
  Transmission Date: 20070707
  Serious: Yes (Hospitalization)
  Sender: FDA-Public Use
  Company Number: FR-ROCHE-480053

PATIENT
  Age: 53 Year
  Sex: Male

DRUGS (55)
  1. ZENAPAX [Suspect]
     Dosage: 2 MG/KG DOSE ACCORDING TO PROTOCOL.
     Route: 042
     Dates: start: 20051207, end: 20051207
  2. ZENAPAX [Suspect]
     Dosage: 1 MG/KG DOSE ACCORDING TO PROTOCOL.
     Route: 042
     Dates: start: 20051214, end: 20051214
  3. MYCOPHENOLATE MOFETIL [Suspect]
     Route: 042
     Dates: start: 20051207, end: 20051207
  4. MYCOPHENOLATE MOFETIL [Suspect]
     Dosage: RETURN TOWARDS PER PROTOCOL DOSE.
     Route: 042
     Dates: start: 20051208, end: 20051212
  5. MYCOPHENOLATE MOFETIL [Suspect]
     Route: 042
     Dates: start: 20060129, end: 20060129
  6. MYCOPHENOLATE MOFETIL [Suspect]
     Route: 042
     Dates: start: 20060130, end: 20060202
  7. MYCOPHENOLATE MOFETIL [Suspect]
     Dosage: RETURN TOWARDS PER PROTOCOL DOSE.
     Route: 048
     Dates: start: 20051213, end: 20051213
  8. MYCOPHENOLATE MOFETIL [Suspect]
     Dosage: RETURN TOWARDS PER PROTOCOL DOSE.
     Route: 048
     Dates: start: 20051214, end: 20060128
  9. MYCOPHENOLATE MOFETIL [Suspect]
     Route: 048
     Dates: start: 20060203, end: 20060206
  10. MYCOPHENOLATE MOFETIL [Suspect]
     Dosage: RETURN TOWARDS PER PROTOCOL DOSE.
     Route: 048
     Dates: start: 20060207, end: 20060314
  11. MYCOPHENOLATE MOFETIL [Suspect]
     Route: 048
     Dates: start: 20060315, end: 20060423
  12. MYCOPHENOLATE MOFETIL [Suspect]
     Route: 048
     Dates: start: 20060424, end: 20061128
  13. MYCOPHENOLATE MOFETIL [Suspect]
     Route: 048
     Dates: start: 20061129, end: 20061212
  14. TACROLIMUS [Suspect]
     Dosage: ADJUSTED TO MEET PREDEFINED TARGET LEVELS
     Route: 048
     Dates: start: 20051212, end: 20051212
  15. METHYLPREDNISOLONE 16MG TAB [Suspect]
     Dosage: TAPER AS PER LOCAL PROTOCOL
     Route: 065
     Dates: start: 20051207, end: 20051218
  16. PREDNISONE [Suspect]
     Route: 065
     Dates: start: 20051219, end: 20060725
  17. ZOVIRAX [Concomitant]
     Dosage: STOPPED ON 13 DECEMBER 2005 AND RESTARTED ON 25 JANUARY 2006 FOR ^STENOTROPHOMONAS^ UTI
     Dates: start: 20051207, end: 20060208
  18. ZELITREX [Concomitant]
     Dates: start: 20051213, end: 20051224
  19. HEPARIN [Concomitant]
     Indication: THROMBOSIS PROPHYLAXIS
     Dates: start: 20051208, end: 20051223
  20. FRAXIPARINE [Concomitant]
     Indication: THROMBOSIS PROPHYLAXIS
     Dates: start: 20051224, end: 20060123
  21. INIPOMP [Concomitant]
     Indication: PROPHYLAXIS
     Dates: start: 20051207
  22. BURINEX [Concomitant]
     Dosage: STOPPED ON 08 AND RESTARTED ON 21 DECEMBER 2005.
     Dates: start: 20051207, end: 20051221
  23. PIPERILLINE [Concomitant]
     Dates: start: 20051207, end: 20051210
  24. PERFALGAN [Concomitant]
     Indication: ABDOMINAL PAIN
     Dosage: STOPPED ON 24 DECEMBER 2005 AND RESTARTED ON 02 JANUARY 2006.  RESTARTED AS TREATMENT FOR E.COLI UT+
     Dates: start: 20051216, end: 20060214
  25. MORPHINE [Concomitant]
     Indication: ABDOMINAL PAIN
     Dosage: STOPPED ON 10 AND RESTARTED ON 17 DECEMBER 2005.
     Dates: start: 20051210, end: 20051221
  26. TAZOCILLINE [Concomitant]
     Indication: STAPHYLOCOCCAL SEPSIS
     Dosage: ALSO GIVEN AS TREATMENT FOR E.COLI UTI 25 TO 27 APRIL 2006.
     Dates: start: 20051217, end: 20051221
  27. ACTRAPID [Concomitant]
     Dates: start: 20051208, end: 20051218
  28. NICARDIPINE HCL [Concomitant]
     Dosage: STOPPED ON 12 DECEMBER AND RESTARTED ON 24 FEBRUARY 2006.
     Dates: start: 20051208, end: 20060226
  29. AMLOR [Concomitant]
     Dosage: STOPPED ON 12 AND RESTARTED ON 22 DECEMBER 2005.  STOPPED ON 17 AND RESTARTED ON 27 APRIL 2006.
     Dates: start: 20051212, end: 20060522
  30. COAPROVEL [Concomitant]
     Dates: start: 20050418, end: 20050426
  31. TARGOCID [Concomitant]
     Indication: STAPHYLOCOCCAL SEPSIS
     Dosage: STOPPED ON 26 DECEMBER 2005 AND RESTARTED ON 11 JANUARY TO 20 FEBRUARY 2006 FOR AN E COLI UTI.
     Dates: start: 20051220, end: 20060220
  32. LASIX [Concomitant]
     Dates: start: 20051213, end: 20051213
  33. KAYEXALATE [Concomitant]
     Dates: start: 20060103, end: 20060103
  34. ATARAX [Concomitant]
     Indication: ANXIETY
     Dates: start: 20051222, end: 20060227
  35. DOLIPRANE [Concomitant]
     Indication: HEADACHE
     Dates: start: 20060105, end: 20060108
  36. SPASFON [Concomitant]
     Indication: ABDOMINAL PAIN
     Dates: start: 20060109, end: 20060109
  37. CIPROFLOXACIN [Concomitant]
     Dosage: STOPPED ON 16 JANUARY AND RESTARTED ON 24 APRIL 2006 FOR E COLI UTI.
     Dates: start: 20060109, end: 20060424
  38. TIENAM [Concomitant]
     Dosage: STOPPED ON 24 JANUARY AND RESTARTED ON 27 APRIL TO 15 MAY 2006 FOR AN E COLI UTI.
     Dates: start: 20060111, end: 20060515
  39. ACUPAN [Concomitant]
     Indication: ANXIETY
     Dates: start: 20060123, end: 20060123
  40. APROVEL [Concomitant]
     Dates: start: 20060523, end: 20060725
  41. BACTRIM [Concomitant]
     Dosage: ^STENOTROPHOMONAS^ URINARY INFECTION
     Dates: start: 20060125, end: 20060211
  42. CLAVENTIN [Concomitant]
     Dosage: ^STENOTROPHOMONAS^ UTI
     Dates: start: 20060125, end: 20060211
  43. FLAGYL [Concomitant]
     Dosage: ^STENOTROPHOMONAS^ UTI
     Dates: start: 20060125, end: 20060205
  44. RIVOTRIL [Concomitant]
     Indication: ANXIETY
     Dates: start: 20060124, end: 20060225
  45. TRILEPTAL [Concomitant]
     Indication: ANXIETY
     Dates: start: 20060131, end: 20060315
  46. MAGNEFAR B6 [Concomitant]
     Dosage: INDICATION: DEFICIENCY
     Dates: start: 20060117, end: 20060123
  47. DISCOTRINE [Concomitant]
     Indication: ANXIETY
     Dates: start: 20060206, end: 20060207
  48. HYPNOVEL [Concomitant]
     Indication: ANXIETY
     Dates: start: 20060206, end: 20060207
  49. TRANXENE [Concomitant]
     Indication: ANXIETY
     Dates: start: 20060206, end: 20060207
  50. SERESTA [Concomitant]
     Indication: DEPRESSION
     Dates: start: 20060210
  51. ATHYMIL [Concomitant]
     Indication: DEPRESSION
     Dates: start: 20060210, end: 20060321
  52. LOVENOX [Concomitant]
     Indication: THROMBOSIS PROPHYLAXIS
     Dosage: STOPPED ON 07 MARCH, RESTARTED ON 23 APRIL TO 22 MAY AND RESTARTED AGAIN ON 25 JULY 2006.
     Dates: start: 20060129
  53. ASPEGIC 1000 [Concomitant]
     Indication: THROMBOSIS PROPHYLAXIS
     Dosage: STOPPED ON 17 APRIL AND RESTARTED ON 23 MAY 2006.  PATIENT TOOK ^KARDEGIC^ FROM 18 APRIL TO 22 APRI+
     Dates: start: 20060308, end: 20060724
  54. XANAX [Concomitant]
     Indication: DEPRESSION
     Dates: start: 20060309
  55. BURINEX [Concomitant]
     Indication: DEPRESSION
     Dates: start: 20061117, end: 20061117

REACTIONS (1)
  - KLEBSIELLA INFECTION [None]
